FAERS Safety Report 20954946 (Version 1)
Quarter: 2022Q2

REPORT INFORMATION
  Report Type: Spontaneous
  Country: JP (occurrence: None)
  Receive Date: 20220614
  Receipt Date: 20220614
  Transmission Date: 20220720
  Serious: Yes (Hospitalization)
  Sender: FDA-Public Use
  Company Number: 2022A212422

PATIENT
  Age: 72 Year
  Sex: Female

DRUGS (2)
  1. CRESTOR [Suspect]
     Active Substance: ROSUVASTATIN CALCIUM
     Indication: Dyslipidaemia
     Dosage: DOSE UNKNOWN
     Route: 048
     Dates: start: 20220527, end: 20220531
  2. CARBOCYSTEINE [Concomitant]
     Active Substance: CARBOCYSTEINE
     Route: 048
     Dates: end: 20220603

REACTIONS (4)
  - Appendicitis [Unknown]
  - Abdominal pain [Unknown]
  - Diarrhoea [Unknown]
  - Abdominal distension [Unknown]

NARRATIVE: CASE EVENT DATE: 20220531
